FAERS Safety Report 10058310 (Version 2)
Quarter: 2014Q2

REPORT INFORMATION
  Report Type: Spontaneous
  Country: US (occurrence: US)
  Receive Date: 20140404
  Receipt Date: 20140502
  Transmission Date: 20141212
  Serious: Yes (Hospitalization, Other)
  Sender: FDA-Public Use
  Company Number: US-ELI_LILLY_AND_COMPANY-US201403008989

PATIENT
  Sex: Male

DRUGS (5)
  1. INSULIN HUMAN [Suspect]
     Indication: TYPE 2 DIABETES MELLITUS
     Dosage: UNK
     Route: 065
     Dates: end: 201402
  2. LANTUS [Concomitant]
     Dosage: 60 U, EACH EVENING
  3. VITAMIN C                          /00008001/ [Concomitant]
     Dosage: UNK, QD
  4. CALCIUM [Concomitant]
     Dosage: UNK, QD
  5. VITAMIN D                          /00107901/ [Concomitant]
     Dosage: UNK, QD

REACTIONS (3)
  - Neuropathic arthropathy [Unknown]
  - Weight decreased [Unknown]
  - Hypoglycaemia [Recovered/Resolved]
